FAERS Safety Report 10874457 (Version 5)
Quarter: 2015Q2

REPORT INFORMATION
  Report Type: Spontaneous
  Country: US (occurrence: US)
  Receive Date: 20150227
  Receipt Date: 20150629
  Transmission Date: 20150821
  Serious: Yes (Hospitalization, Other)
  Sender: FDA-Public Use
  Company Number: US-MERCK-1502USA011784

PATIENT
  Sex: Male
  Weight: 115.65 kg

DRUGS (3)
  1. BYETTA [Suspect]
     Active Substance: EXENATIDE
     Indication: TYPE 2 DIABETES MELLITUS
     Dosage: 10 MICROGRAM, QD
     Dates: start: 20101101, end: 20111223
  2. JANUVIA [Suspect]
     Active Substance: SITAGLIPTIN PHOSPHATE
     Indication: TYPE 2 DIABETES MELLITUS
     Dosage: 100 MG, QD
     Route: 048
     Dates: start: 20130124, end: 20130516
  3. VICTOZA [Suspect]
     Active Substance: LIRAGLUTIDE
     Indication: TYPE 2 DIABETES MELLITUS
     Dosage: UNK, QD

REACTIONS (29)
  - Adenocarcinoma pancreas [Unknown]
  - Ductal adenocarcinoma of pancreas [Unknown]
  - Ascites [Unknown]
  - Cataract operation [Unknown]
  - Haemangioma of liver [Unknown]
  - Abdominal hernia [Unknown]
  - Gastrooesophageal reflux disease [Unknown]
  - Metastases to liver [Unknown]
  - Atelectasis [Unknown]
  - Cardiovascular disorder [Unknown]
  - Hypertension [Unknown]
  - Upper respiratory tract infection [Unknown]
  - Anaemia of malignant disease [Unknown]
  - Pancreatic duct dilatation [Unknown]
  - Bradycardia [Unknown]
  - Hepatic steatosis [Unknown]
  - Pleural effusion [Unknown]
  - Bile duct stent insertion [Unknown]
  - Hypercholesterolaemia [Unknown]
  - Hyperglycaemia [Unknown]
  - Pancreaticoduodenectomy [Unknown]
  - Treatment noncompliance [Unknown]
  - Pancreatic carcinoma recurrent [Unknown]
  - Periportal oedema [Unknown]
  - Pancreatitis chronic [Not Recovered/Not Resolved]
  - Arthritis [Unknown]
  - Cholecystitis chronic [Not Recovered/Not Resolved]
  - Bile duct obstruction [Unknown]
  - Sleep apnoea syndrome [Unknown]

NARRATIVE: CASE EVENT DATE: 2013
